APPROVED DRUG PRODUCT: OLANZAPINE
Active Ingredient: OLANZAPINE
Strength: 10MG/VIAL
Dosage Form/Route: POWDER;INTRAMUSCULAR
Application: A211072 | Product #001 | TE Code: AP
Applicant: UBI PHARMA INC
Approved: Jun 11, 2025 | RLD: No | RS: No | Type: RX